FAERS Safety Report 9744353 (Version 1)
Quarter: 2013Q4

REPORT INFORMATION
  Report Type: Spontaneous
  Country: BR (occurrence: BR)
  Receive Date: 20131210
  Receipt Date: 20131210
  Transmission Date: 20140711
  Serious: Yes (Hospitalization, Other)
  Sender: FDA-Public Use
  Company Number: BR-PFIZER INC-2013349304

PATIENT
  Age: 62 Year
  Sex: Female
  Weight: 62 kg

DRUGS (6)
  1. LIPITOR [Suspect]
     Indication: BLOOD PRESSURE
     Dosage: 20 MG, DAILY
     Route: 048
     Dates: start: 20130805
  2. BENICAR HCT [Concomitant]
     Dosage: 40/25 MG, DAILY
     Dates: start: 20130805
  3. GLIMEPIL [Concomitant]
     Indication: DIABETES MELLITUS
     Dosage: 2 MG, 2X/DAY
     Dates: start: 2009
  4. LOTAR [Concomitant]
     Indication: HYPERTENSION
     Dosage: 5/100 MG/ DAILY
     Dates: start: 2009
  5. PRESSAT [Concomitant]
     Dosage: 1 DF, DAILY
     Dates: start: 20130805
  6. VASOGARD [Concomitant]
     Indication: ANGIOPATHY
     Dosage: 100 MG, DAILY
     Dates: start: 2009

REACTIONS (3)
  - Femur fracture [Unknown]
  - Fall [Unknown]
  - Off label use [Unknown]
